FAERS Safety Report 10032263 (Version 3)
Quarter: 2014Q3

REPORT INFORMATION
  Report Type: Spontaneous
  Country: CN (occurrence: CN)
  Receive Date: 20140324
  Receipt Date: 20140713
  Transmission Date: 20150326
  Serious: Yes (Death)
  Sender: FDA-Public Use
  Company Number: PHHY2014CN035174

PATIENT
  Age: 90 Year
  Sex: Female

DRUGS (3)
  1. ACLASTA [Suspect]
     Active Substance: ZOLEDRONIC ACID
     Dosage: 5 MG/ 100 ML, ONCE A YEAR (PER 365 DAYS)
     Route: 042
  2. ACLASTA [Suspect]
     Active Substance: ZOLEDRONIC ACID
     Indication: OSTEOPOROSIS POSTMENOPAUSAL
     Dosage: 5 MG/ 100 ML, ONCE A YEAR (PER 365 DAYS)
     Route: 042
  3. ACLASTA [Suspect]
     Active Substance: ZOLEDRONIC ACID
     Dosage: 5 MG/ 100 ML, ONCE A YEAR (PER 365 DAYS)
     Route: 042
     Dates: start: 20140118

REACTIONS (4)
  - Oedema peripheral [Fatal]
  - Lung infection [Fatal]
  - Cardiac failure [Fatal]
  - Incorrect drug administration duration [Unknown]

NARRATIVE: CASE EVENT DATE: 20140120
